FAERS Safety Report 15640352 (Version 2)
Quarter: 2019Q1

REPORT INFORMATION
  Report Type: Report from Study
  Country: None (occurrence: US)
  Receive Date: 20181120
  Receipt Date: 20190116
  Transmission Date: 20190417
  Serious: Yes (Other)
  Sender: FDA-Public Use
  Company Number: US-ABBVIE-18K-163-2560678-00

PATIENT
  Age: 57 Year
  Sex: Male
  Weight: 95.34 kg

DRUGS (1)
  1. HUMIRA [Suspect]
     Active Substance: ADALIMUMAB
     Indication: HIDRADENITIS
     Route: 058

REACTIONS (5)
  - Insomnia [Not Recovered/Not Resolved]
  - Back pain [Not Recovered/Not Resolved]
  - Discomfort [Unknown]
  - Hidradenitis [Not Recovered/Not Resolved]
  - Furuncle [Recovering/Resolving]

NARRATIVE: CASE EVENT DATE: 2018
